FAERS Safety Report 24120592 (Version 1)
Quarter: 2024Q3

REPORT INFORMATION
  Report Type: Spontaneous
  Country: FR (occurrence: FR)
  Receive Date: 20240722
  Receipt Date: 20240722
  Transmission Date: 20241017
  Serious: Yes (Other)
  Sender: SANDOZ
  Company Number: FR-SAMSUNG BIOEPIS-SB-2024-20348

PATIENT
  Age: 52 Year
  Sex: Female

DRUGS (6)
  1. ADALIMUMAB [Suspect]
     Active Substance: ADALIMUMAB\ISOPROPYL ALCOHOL
     Indication: Rheumatoid arthritis
     Dosage: UNK
     Route: 065
  2. ETANERCEPT [Suspect]
     Active Substance: ETANERCEPT
     Indication: Rheumatoid arthritis
     Dosage: 50 MG
     Route: 065
  3. FILGOTINIB [Concomitant]
     Active Substance: FILGOTINIB
     Indication: Rheumatoid arthritis
     Dosage: 200 MG, QD
     Route: 065
  4. METHOTREXATE [Concomitant]
     Active Substance: METHOTREXATE
     Indication: Rheumatoid arthritis
     Dosage: 20.000MG
     Route: 065
  5. PREDNISONE [Concomitant]
     Active Substance: PREDNISONE
     Dosage: 15 MG, QD
     Route: 065
  6. PREDNISONE [Concomitant]
     Active Substance: PREDNISONE
     Indication: Rheumatoid arthritis
     Dosage: PROGRESSIVE PREDNISONE TAPERUNK
     Route: 065

REACTIONS (3)
  - Angiocentric lymphoma [Unknown]
  - Bacterial infection [Unknown]
  - Drug ineffective [Unknown]
